FAERS Safety Report 17962233 (Version 1)
Quarter: 2020Q2

REPORT INFORMATION
  Report Type: Spontaneous
  Country: HU (occurrence: HU)
  Receive Date: 20200630
  Receipt Date: 20200630
  Transmission Date: 20200714
  Serious: Yes (Other)
  Sender: FDA-Public Use
  Company Number: HU-TEVA-2020-HU-1793189

PATIENT
  Age: 30 Year
  Sex: Female

DRUGS (1)
  1. PROPRANOLOL [Suspect]
     Active Substance: PROPRANOLOL HYDROCHLORIDE
     Indication: TACHYCARDIA
     Route: 065

REACTIONS (4)
  - Ankle fracture [Recovered/Resolved]
  - Stress [Recovered/Resolved]
  - Somnambulism [Recovered/Resolved]
  - Anger [Recovered/Resolved]
